FAERS Safety Report 11619078 (Version 1)
Quarter: 2015Q4

REPORT INFORMATION
  Report Type: Spontaneous
  Country: GB (occurrence: GB)
  Receive Date: 20151012
  Receipt Date: 20151012
  Transmission Date: 20160304
  Serious: Yes (Life-Threatening, Hospitalization, Disabling)
  Sender: FDA-Public Use
  Company Number: GB-TEVA-598975ACC

PATIENT
  Age: 56 Year
  Sex: Male
  Weight: 88.9 kg

DRUGS (5)
  1. TRAMADOL. [Concomitant]
     Active Substance: TRAMADOL
  2. LANSOPRAZOL [Concomitant]
     Active Substance: LANSOPRAZOLE
  3. TAMSULOSIN HYDROCHLORIDE. [Concomitant]
     Active Substance: TAMSULOSIN HYDROCHLORIDE
  4. NEBIDO [Concomitant]
     Active Substance: TESTOSTERONE UNDECANOATE
  5. CABERGOLINE. [Suspect]
     Active Substance: CABERGOLINE
     Indication: PROLACTINOMA
     Route: 048
     Dates: start: 20150404, end: 20150528

REACTIONS (2)
  - Gangrene [Recovered/Resolved with Sequelae]
  - Necrosis [Recovered/Resolved with Sequelae]

NARRATIVE: CASE EVENT DATE: 20150424
